FAERS Safety Report 4324577-X (Version None)
Quarter: 2004Q1

REPORT INFORMATION
  Report Type: 
  Country: None (occurrence: None)
  Receive Date: 20040326
  Receipt Date: 20040311
  Transmission Date: 20041129
  Serious: Yes (Hospitalization)
  Sender: FDA-Public Use
  Company Number: FR-BRISTOL-MYERS SQUIBB COMPANY-12530614

PATIENT
  Age: 65 Year
  Sex: Female

DRUGS (3)
  1. SINEMET [Suspect]
     Route: 048
     Dates: start: 20040115, end: 20040218
  2. TERALITHE [Interacting]
     Indication: BIPOLAR I DISORDER
  3. ZESTRIL [Interacting]
     Indication: MYOCARDIAL INFARCTION
     Route: 048
     Dates: start: 20040126, end: 20040218

REACTIONS (5)
  - DISTURBANCE IN ATTENTION [None]
  - DRUG INTERACTION [None]
  - DRUG LEVEL INCREASED [None]
  - DYSARTHRIA [None]
  - GAIT DISTURBANCE [None]
